FAERS Safety Report 15511464 (Version 1)
Quarter: 2018Q4

REPORT INFORMATION
  Report Type: Spontaneous
  Country: US (occurrence: US)
  Receive Date: 20181010
  Receipt Date: 20181010
  Transmission Date: 20190205
  Serious: No
  Sender: FDA-Public Use
  Company Number: None

PATIENT
  Age: 76 Year
  Sex: Female

DRUGS (1)
  1. TADALAFIL TAB 20 MG [Suspect]
     Active Substance: TADALAFIL
     Indication: PULMONARY HYPERTENSION
     Dates: start: 20180625

REACTIONS (3)
  - Dyspnoea [None]
  - Product dose omission [None]
  - Product prescribing issue [None]

NARRATIVE: CASE EVENT DATE: 20181005
